FAERS Safety Report 5107759-9 (Version None)
Quarter: 2006Q3

REPORT INFORMATION
  Report Type: 
  Country: None (occurrence: None)
  Receive Date: 20060914
  Receipt Date: 20060907
  Transmission Date: 20061208
  Serious: Yes (Hospitalization, Other)
  Sender: FDA-Public Use
  Company Number: 2006-08-0552

PATIENT
  Age: 46 Year
  Sex: Male

DRUGS (1)
  1. TEMODAL [Suspect]
     Indication: ANAPLASTIC ASTROCYTOMA
     Dosage: 400 MG, PO
     Route: 048
     Dates: start: 20050601, end: 20060809

REACTIONS (2)
  - BLINDNESS UNILATERAL [None]
  - VISUAL ACUITY REDUCED [None]
